FAERS Safety Report 15757897 (Version 3)
Quarter: 2019Q1

REPORT INFORMATION
  Report Type: Report from Study
  Country: None (occurrence: US)
  Receive Date: 20181225
  Receipt Date: 20190108
  Transmission Date: 20190417
  Serious: Yes (Hospitalization, Other)
  Sender: FDA-Public Use
  Company Number: US-ABBVIE-18S-163-2601253-00

PATIENT
  Age: 79 Year
  Sex: Female

DRUGS (2)
  1. CREON [Suspect]
     Active Substance: PANCRELIPASE AMYLASE\PANCRELIPASE LIPASE\PANCRELIPASE PROTEASE
     Dosage: 1 CAPSULE 3 TIMES A DAY WITH MEALS
     Route: 048
     Dates: start: 201802
  2. CREON [Suspect]
     Active Substance: PANCRELIPASE AMYLASE\PANCRELIPASE LIPASE\PANCRELIPASE PROTEASE
     Indication: PANCREATIC FAILURE
     Dosage: 1 CAPSULE 3 TIMES A DAY WITH MEALS
     Route: 048
     Dates: start: 2015

REACTIONS (5)
  - Gait disturbance [Recovering/Resolving]
  - Osteoarthritis [Unknown]
  - Arthralgia [Recovering/Resolving]
  - Post procedural contusion [Not Recovered/Not Resolved]
  - Knee arthroplasty [Recovered/Resolved]

NARRATIVE: CASE EVENT DATE: 2015
